FAERS Safety Report 6745409-6 (Version None)
Quarter: 2010Q2

REPORT INFORMATION
  Report Type: 
  Country: None (occurrence: None)
  Receive Date: 20100528
  Receipt Date: 20100520
  Transmission Date: 20101027
  Serious: Yes (Death, Life-Threatening, Other)
  Sender: FDA-Public Use
  Company Number: JP-BAYER-200913033BYL

PATIENT
  Age: 59 Year
  Sex: Male
  Weight: 63 kg

DRUGS (8)
  1. NEXAVAR [Suspect]
     Indication: HEPATIC NEOPLASM MALIGNANT
     Dosage: TOTAL DAILY DOSE: 800 MG  UNIT DOSE: 200 MG
     Route: 048
     Dates: start: 20090810, end: 20090816
  2. NEXAVAR [Suspect]
     Dosage: UNIT DOSE: 200 MG
     Route: 048
     Dates: start: 20090817, end: 20090819
  3. OXYCONTIN [Suspect]
     Indication: CANCER PAIN
     Route: 048
     Dates: start: 20090810, end: 20090819
  4. AMLODIN [Concomitant]
     Indication: HYPERTENSION
     Dosage: TOTAL DAILY DOSE: 5 MG  UNIT DOSE: 5 MG
     Route: 048
     Dates: start: 20090810, end: 20090819
  5. GASTER D [Concomitant]
     Indication: GASTRITIS
     Dosage: TOTAL DAILY DOSE: 40 MG  UNIT DOSE: 20 MG
     Route: 048
     Dates: start: 20090810, end: 20090819
  6. GASTROM [Concomitant]
     Indication: GASTRITIS
     Dosage: TOTAL DAILY DOSE: 3 G  UNIT DOSE: 1.5 G
     Route: 048
     Dates: start: 20090810, end: 20090819
  7. LOXONIN [Concomitant]
     Indication: CANCER PAIN
     Dosage: TOTAL DAILY DOSE: 180 MG
     Route: 048
     Dates: start: 20090815, end: 20090819
  8. PROCHLORPERAZINE [Concomitant]
     Route: 048
     Dates: start: 20090810, end: 20090819

REACTIONS (6)
  - HEPATIC ENCEPHALOPATHY [None]
  - HEPATIC FUNCTION ABNORMAL [None]
  - JAUNDICE [None]
  - NEUROLOGICAL SYMPTOM [None]
  - OESOPHAGEAL VARICES HAEMORRHAGE [None]
  - PALMAR-PLANTAR ERYTHRODYSAESTHESIA SYNDROME [None]
